FAERS Safety Report 7545698-4 (Version None)
Quarter: 2011Q2

REPORT INFORMATION
  Report Type: 
  Country: None (occurrence: None)
  Receive Date: 20110614
  Receipt Date: 20110610
  Transmission Date: 20111010
  Serious: Yes (Death)
  Sender: FDA-Public Use
  Company Number: US-ASTRAZENECA-2011SE16527

PATIENT
  Age: 47 Year
  Sex: Male

DRUGS (2)
  1. SYMBICORT [Suspect]
     Dosage: 160/4.5 MCG TWO TIMES A DAY
     Route: 055
  2. ATACAND [Suspect]
     Route: 048

REACTIONS (1)
  - DEATH [None]
